FAERS Safety Report 19068932 (Version 1)
Quarter: 2021Q1

REPORT INFORMATION
  Report Type: Spontaneous
  Country: US (occurrence: US)
  Receive Date: 20210329
  Receipt Date: 20210329
  Transmission Date: 20210420
  Serious: Yes (Hospitalization)
  Sender: FDA-Public Use
  Company Number: None

PATIENT
  Sex: Male
  Weight: 113.4 kg

DRUGS (1)
  1. GADOBENATE DIMEGLUMINE [Suspect]
     Active Substance: GADOBENATE DIMEGLUMINE
     Route: 040
     Dates: start: 20210318, end: 20210318

REACTIONS (7)
  - Loss of consciousness [None]
  - Eye disorder [None]
  - Hypersensitivity [None]
  - Troponin increased [None]
  - Paraesthesia [None]
  - Dizziness [None]
  - Vomiting [None]
